FAERS Safety Report 24438651 (Version 2)
Quarter: 2024Q4

REPORT INFORMATION
  Report Type: Spontaneous
  Country: US (occurrence: US)
  Receive Date: 20241015
  Receipt Date: 20241101
  Transmission Date: 20250115
  Serious: No
  Sender: BLUEPRINT MEDICINES CORPORATION
  Company Number: US-Blueprint Medicines Corporation-SP-US-2024-002101

PATIENT
  Sex: Male

DRUGS (1)
  1. AYVAKIT [Suspect]
     Active Substance: AVAPRITINIB
     Indication: Gastrointestinal stromal tumour
     Route: 065
     Dates: start: 20240924

REACTIONS (6)
  - Rash macular [Unknown]
  - Skin discolouration [Unknown]
  - Diarrhoea [Unknown]
  - Fatigue [Unknown]
  - Alopecia [Unknown]
  - Pigmentation disorder [Unknown]
